FAERS Safety Report 20246881 (Version 2)
Quarter: 2022Q1

REPORT INFORMATION
  Report Type: Spontaneous
  Country: US (occurrence: US)
  Receive Date: 20211229
  Receipt Date: 20220304
  Transmission Date: 20220423
  Serious: No
  Sender: FDA-Public Use
  Company Number: US-PFIZER INC-202101812867

PATIENT
  Age: 33 Year
  Sex: Female

DRUGS (1)
  1. XELJANZ XR [Suspect]
     Active Substance: TOFACITINIB CITRATE
     Indication: Rheumatoid arthritis
     Dosage: 11 MG, 1X/DAY
     Route: 048
     Dates: start: 20211103

REACTIONS (5)
  - Product dose omission issue [Unknown]
  - Abdominal discomfort [Recovered/Resolved]
  - Memory impairment [Unknown]
  - Discouragement [Recovering/Resolving]
  - Depressed mood [Recovering/Resolving]
